FAERS Safety Report 6753102-9 (Version None)
Quarter: 2010Q2

REPORT INFORMATION
  Report Type: 
  Country: None (occurrence: None)
  Receive Date: 20100603
  Receipt Date: 20100521
  Transmission Date: 20101027
  Serious: Yes (Other)
  Sender: FDA-Public Use
  Company Number: PHHY2010HU29547

PATIENT
  Age: 48 Year
  Sex: Male

DRUGS (1)
  1. CLOZAPINE [Suspect]
     Indication: SCHIZOPHRENIA
     Dosage: 400 MG, QD

REACTIONS (6)
  - DECREASED ACTIVITY [None]
  - EXERCISE LACK OF [None]
  - HYPOKINESIA [None]
  - METABOLIC SYNDROME [None]
  - OBESITY [None]
  - WEIGHT INCREASED [None]
